FAERS Safety Report 6450055-8 (Version None)
Quarter: 2009Q4

REPORT INFORMATION
  Report Type: 
  Country: None (occurrence: None)
  Receive Date: 20091123
  Receipt Date: 20091117
  Transmission Date: 20100525
  Serious: Yes (Other)
  Sender: FDA-Public Use
  Company Number: US-ELI_LILLY_AND_COMPANY-US200911004588

PATIENT
  Sex: Male

DRUGS (7)
  1. BYETTA [Suspect]
     Indication: TYPE 2 DIABETES MELLITUS
     Dosage: 5 UG, 2/D
     Route: 058
  2. CAPTOPRIL [Concomitant]
     Dosage: 50 MG, DAILY (1/D)
     Route: 048
  3. CARDIZEM CD [Concomitant]
     Dosage: 180 MG, DAILY (1/D)
     Route: 048
  4. COUMADIN [Concomitant]
     Dosage: 10 MG, DAILY (1/D)
     Route: 048
  5. GLUCOPHAGE [Concomitant]
     Dosage: 500 MG, 2/D
     Route: 048
  6. LIPITOR [Concomitant]
     Dosage: 80 MG, DAILY (1/D)
  7. PLAVIX [Concomitant]
     Dosage: 75 MG, DAILY (1/D)
     Route: 048

REACTIONS (2)
  - NON-CARDIAC CHEST PAIN [None]
  - PANCREATITIS [None]
